FAERS Safety Report 9883248 (Version 1)
Quarter: 2014Q1

REPORT INFORMATION
  Report Type: Report from Study
  Country: US (occurrence: US)
  Receive Date: 20140209
  Receipt Date: 20140209
  Transmission Date: 20141002
  Serious: Yes (Other)
  Sender: FDA-Public Use
  Company Number: US-ROCHE-1323887

PATIENT
  Age: 63 Year
  Sex: Female
  Weight: 64.47 kg

DRUGS (3)
  1. AVASTIN [Suspect]
     Indication: OVARIAN CANCER
     Route: 065
     Dates: start: 20120612
  2. CYTOXAN [Concomitant]
     Route: 065
     Dates: start: 20120612
  3. SYNTHROID [Concomitant]
     Route: 065

REACTIONS (5)
  - Squamous cell carcinoma [Unknown]
  - Hypertension [Unknown]
  - Off label use [Unknown]
  - Asthenia [Unknown]
  - Hypoglycaemia [Unknown]
